FAERS Safety Report 7187121-8 (Version None)
Quarter: 2010Q4

REPORT INFORMATION
  Report Type: 
  Country: None (occurrence: None)
  Receive Date: 20101222
  Receipt Date: 20101209
  Transmission Date: 20110411
  Serious: Yes (Other)
  Sender: FDA-Public Use
  Company Number: GB-WATSON-2010-16157

PATIENT
  Age: 48 Year
  Sex: Female
  Weight: 73.8 kg

DRUGS (8)
  1. RAMIPRIL [Suspect]
     Indication: PRODUCT USED FOR UNKNOWN INDICATION
     Dosage: UNK
     Dates: start: 20101206
  2. RAMIPRIL [Suspect]
     Dosage: UNK
     Dates: start: 20101118, end: 20101201
  3. LEVOTHYROXINE [Concomitant]
     Indication: PRODUCT USED FOR UNKNOWN INDICATION
     Dosage: UNK
     Dates: start: 20100803, end: 20100928
  4. LEVOTHYROXINE [Concomitant]
     Dosage: UNK
     Dates: start: 20100928, end: 20101123
  5. LEVOTHYROXINE [Concomitant]
     Dosage: UNK
     Dates: start: 20101118
  6. OILATUM                            /00103901/ [Concomitant]
     Indication: PRODUCT USED FOR UNKNOWN INDICATION
     Dosage: UNK
     Dates: start: 20100803, end: 20100928
  7. OILATUM                            /00103901/ [Concomitant]
     Dosage: UNK
     Dates: start: 20100928, end: 20101123
  8. OILATUM                            /00103901/ [Concomitant]
     Dosage: UNK
     Dates: start: 20101118

REACTIONS (3)
  - DRY THROAT [None]
  - PRURITUS [None]
  - THIRST [None]
